FAERS Safety Report 10685230 (Version 1)
Quarter: 2014Q4

REPORT INFORMATION
  Report Type: Spontaneous
  Country: SG (occurrence: SG)
  Receive Date: 20141231
  Receipt Date: 20141231
  Transmission Date: 20150529
  Serious: Yes (Life-Threatening, Other)
  Sender: FDA-Public Use
  Company Number: SG-BAYER-2014-189587

PATIENT
  Age: 18 Year
  Sex: Female

DRUGS (4)
  1. ERYTHROMYCIN. [Concomitant]
     Active Substance: ERYTHROMYCIN
     Indication: ANTIBIOTIC PROPHYLAXIS
     Route: 048
  2. NIFEDIPINE. [Suspect]
     Active Substance: NIFEDIPINE
     Indication: TOCOLYSIS
     Dosage: LOADING DOSE OF 10 MG EVERY 15 MIN (UNCHEWED) X 4 DOSES
     Route: 048
  3. PENICILLIN G [Concomitant]
     Active Substance: PENICILLIN G
     Indication: ANTIBIOTIC PROPHYLAXIS
     Route: 042
  4. ENTONOX [Concomitant]
     Active Substance: NITROUS OXIDE\OXYGEN
     Indication: ANALGESIC THERAPY

REACTIONS (11)
  - Product use issue [None]
  - Fatigue [None]
  - Haemodynamic instability [Recovered/Resolved]
  - Unresponsive to stimuli [Recovered/Resolved]
  - Caesarean section [Recovered/Resolved]
  - Chest discomfort [Recovered/Resolved]
  - Asthenia [None]
  - Tachycardia [Recovered/Resolved]
  - Somnolence [Recovered/Resolved]
  - Exposure during pregnancy [None]
  - Hypotension [Recovered/Resolved]
